FAERS Safety Report 15673590 (Version 2)
Quarter: 2018Q4

REPORT INFORMATION
  Report Type: Spontaneous
  Country: US (occurrence: US)
  Receive Date: 20181129
  Receipt Date: 20181130
  Transmission Date: 20190205
  Serious: No
  Sender: FDA-Public Use
  Company Number: US-PFIZER INC-2018478106

PATIENT
  Age: 67 Year
  Sex: Female

DRUGS (2)
  1. CHANTIX [Suspect]
     Active Substance: VARENICLINE TARTRATE
     Indication: EX-TOBACCO USER
     Dosage: 1 MG, 2X/DAY
     Route: 048
     Dates: start: 20181031
  2. LATUDA [Interacting]
     Active Substance: LURASIDONE HYDROCHLORIDE
     Indication: BIPOLAR DISORDER
     Dosage: 160 MG, 1X/DAY [AT NIGHT]
     Route: 048
     Dates: start: 2016

REACTIONS (4)
  - Drug interaction [Unknown]
  - Nausea [Recovering/Resolving]
  - Vomiting [Unknown]
  - Malaise [Unknown]

NARRATIVE: CASE EVENT DATE: 20181108
